FAERS Safety Report 19954846 (Version 1)
Quarter: 2021Q4

REPORT INFORMATION
  Report Type: Spontaneous
  Country: US (occurrence: US)
  Receive Date: 20211013
  Receipt Date: 20211013
  Transmission Date: 20220304
  Serious: Yes (Other)
  Sender: FDA-Public Use
  Company Number: US-TEVA-2021-US-1963574

PATIENT
  Age: 78 Year
  Sex: Female

DRUGS (3)
  1. FAMCICLOVIR [Suspect]
     Active Substance: FAMCICLOVIR
     Indication: Herpes zoster
     Dosage: 1000 MILLIGRAM DAILY; ONE TWICE A DAY FOR 5 DAYS
     Route: 065
  2. METHOTREXATE [Suspect]
     Active Substance: METHOTREXATE
     Indication: Rheumatoid arthritis
     Route: 065
  3. XELJANZ XR [Suspect]
     Active Substance: TOFACITINIB CITRATE
     Indication: Rheumatoid arthritis
     Route: 065

REACTIONS (2)
  - Facial paralysis [Unknown]
  - Speech disorder [Unknown]

NARRATIVE: CASE EVENT DATE: 20210924
